FAERS Safety Report 24816154 (Version 1)
Quarter: 2025Q1

REPORT INFORMATION
  Report Type: Spontaneous
  Country: CN (occurrence: CN)
  Receive Date: 20250107
  Receipt Date: 20250107
  Transmission Date: 20250408
  Serious: Yes (Other)
  Sender: PFIZER
  Company Number: CN-PFIZER INC-PV202500001294

PATIENT
  Age: 83 Year
  Sex: Male
  Weight: 32 kg

DRUGS (3)
  1. LINEZOLID [Suspect]
     Active Substance: LINEZOLID
     Indication: Urinary tract infection
     Dosage: 600 MG, 2X/DAY
     Route: 048
     Dates: start: 20241129, end: 20241209
  2. AMIKACIN SULFATE [Suspect]
     Active Substance: AMIKACIN SULFATE
     Indication: Urinary tract infection
     Dosage: 0.4 G, 1X/DAY
     Route: 041
     Dates: start: 20241129, end: 20241208
  3. SODIUM CHLORIDE [Concomitant]
     Active Substance: SODIUM CHLORIDE
     Indication: Vehicle solution use
     Dosage: 100 ML, 1X/DAY
     Route: 041
     Dates: start: 20241129, end: 20241208

REACTIONS (3)
  - Delirium [Recovering/Resolving]
  - Thinking abnormal [Recovering/Resolving]
  - Restlessness [Recovering/Resolving]

NARRATIVE: CASE EVENT DATE: 20241208
